FAERS Safety Report 15595393 (Version 1)
Quarter: 2018Q4

REPORT INFORMATION
  Report Type: Report from Study
  Country: IT (occurrence: IT)
  Receive Date: 20181107
  Receipt Date: 20181107
  Transmission Date: 20190205
  Serious: Yes (Hospitalization)
  Sender: FDA-Public Use
  Company Number: IT-TEVA-2018-IT-972187

PATIENT
  Age: 54 Year
  Sex: Female

DRUGS (2)
  1. PALEXIA [Suspect]
     Active Substance: TAPENTADOL HYDROCHLORIDE
     Indication: INTENTIONAL SELF-INJURY
     Route: 048
  2. SERTRALINE HYDROCHLORIDE. [Suspect]
     Active Substance: SERTRALINE HYDROCHLORIDE
     Indication: INTENTIONAL SELF-INJURY
     Route: 048

REACTIONS (5)
  - Intentional self-injury [Unknown]
  - Intentional overdose [Unknown]
  - Hypertonia [Unknown]
  - Tremor [Unknown]
  - Sopor [Unknown]

NARRATIVE: CASE EVENT DATE: 20180627
